FAERS Safety Report 8108129-1 (Version None)
Quarter: 2012Q1

REPORT INFORMATION
  Report Type: 
  Country: None (occurrence: None)
  Receive Date: 20120202
  Receipt Date: 20120131
  Transmission Date: 20120608
  Serious: Yes (Other)
  Sender: FDA-Public Use
  Company Number: NO-PFIZER INC-2011073710

PATIENT
  Age: 38 Year
  Sex: Male

DRUGS (1)
  1. LYRICA [Suspect]
     Indication: ANXIETY
     Dosage: 300 MG, 2X/DAY
     Route: 048
     Dates: end: 20100701

REACTIONS (2)
  - GASTROINTESTINAL PAIN [None]
  - DRUG WITHDRAWAL SYNDROME [None]
